FAERS Safety Report 12783235 (Version 1)
Quarter: 2016Q3

REPORT INFORMATION
  Report Type: Report from Study
  Country: US (occurrence: US)
  Receive Date: 20160927
  Receipt Date: 20160927
  Transmission Date: 20161109
  Serious: No
  Sender: FDA-Public Use
  Company Number: PHEH2016US024651

PATIENT
  Sex: Male

DRUGS (1)
  1. AFINITOR [Suspect]
     Active Substance: EVEROLIMUS
     Indication: ANGIOMYOLIPOMA
     Dosage: 15 MG, QD
     Route: 048
     Dates: start: 20150508

REACTIONS (4)
  - Mouth ulceration [Not Recovered/Not Resolved]
  - Fatigue [Unknown]
  - Hypersomnia [Unknown]
  - Stomatitis [Unknown]
